FAERS Safety Report 24750505 (Version 1)
Quarter: 2024Q4

REPORT INFORMATION
  Report Type: Report from Study
  Country: BE (occurrence: BE)
  Receive Date: 20241218
  Receipt Date: 20241218
  Transmission Date: 20250115
  Serious: Yes (Other)
  Sender: JOHNSON AND JOHNSON
  Company Number: BE-JNJFOC-20241240439

PATIENT
  Sex: Male

DRUGS (4)
  1. SPRAVATO [Suspect]
     Active Substance: ESKETAMINE
     Indication: Depression
     Dosage: 84 MG (3 DEVICES): 01-AUG-2022, 05-AUG-2022, 08-AUG-2022, 12-AUG-2022, 16-AUG-2022, 19-AUG-2022, 22-
     Route: 045
     Dates: start: 20220729, end: 20230828
  2. SPRAVATO [Suspect]
     Active Substance: ESKETAMINE
     Dosage: 56 MG (2 DEVICES), 1 TOTAL DOSE
     Route: 045
     Dates: start: 20220725, end: 20220725
  3. SPRAVATO [Suspect]
     Active Substance: ESKETAMINE
     Dosage: 56 MG (2 DEVICES), 1 TOTAL DOSE
     Route: 045
     Dates: start: 20240110, end: 20240110
  4. SPRAVATO [Suspect]
     Active Substance: ESKETAMINE
     Dosage: 84 MG (3 DEVICES): 19-JAN-2024, 22-JAN-2024, 24-JAN-2024, 29-JAN-2024, 01-FEB-2024, 06-FEB-2024, 15-
     Route: 045
     Dates: start: 20240112, end: 20240416

REACTIONS (1)
  - Drug abuse [Recovered/Resolved]

NARRATIVE: CASE EVENT DATE: 20240419
